FAERS Safety Report 18131178 (Version 1)
Quarter: 2020Q3

REPORT INFORMATION
  Report Type: Spontaneous
  Country: US (occurrence: US)
  Receive Date: 20200810
  Receipt Date: 20200810
  Transmission Date: 20201103
  Serious: No
  Sender: FDA-Public Use
  Company Number: US-AMNEAL PHARMACEUTICALS-2019AMN00894

PATIENT
  Sex: Male

DRUGS (1)
  1. METAXALONE. [Suspect]
     Active Substance: METAXALONE
     Indication: MUSCLE SPASMS
     Dosage: UNK UNK, 5X/DAY (AS MANY AS 5 TIMES A DAY)
     Route: 065

REACTIONS (2)
  - Intentional overdose [Unknown]
  - Drug ineffective [Unknown]
